FAERS Safety Report 17113310 (Version 1)
Quarter: 2019Q4

REPORT INFORMATION
  Report Type: Spontaneous
  Country: IN (occurrence: IN)
  Receive Date: 20191204
  Receipt Date: 20191204
  Transmission Date: 20200122
  Serious: Yes (Hospitalization)
  Sender: FDA-Public Use
  Company Number: IN-BAXTER-2019BAX024313

PATIENT
  Age: 56 Year
  Sex: Male

DRUGS (5)
  1. MONOCEF (CEFALEXIN) [Suspect]
     Active Substance: CEPHALEXIN
     Indication: PRODUCT USED FOR UNKNOWN INDICATION
     Route: 065
     Dates: start: 20191122
  2. SODIUM CHLORIDE. [Suspect]
     Active Substance: SODIUM CHLORIDE
     Indication: MEDICATION DILUTION
     Route: 065
     Dates: start: 20191122
  3. CEFTRION [Suspect]
     Active Substance: CEFTRIAXONE SODIUM
     Indication: PRODUCT USED FOR UNKNOWN INDICATION
     Route: 065
  4. SODIUM CHLORIDE. [Suspect]
     Active Substance: SODIUM CHLORIDE
     Dosage: TEST DOSE
     Route: 065
     Dates: start: 20191122, end: 20191122
  5. MONOCEF (CEFALEXIN) [Suspect]
     Active Substance: CEPHALEXIN
     Dosage: TEST DOSE
     Route: 065
     Dates: start: 20191122, end: 20191122

REACTIONS (3)
  - Hypersensitivity [Unknown]
  - Swelling face [Recovered/Resolved]
  - Pruritus [Recovered/Resolved]

NARRATIVE: CASE EVENT DATE: 20191122
